FAERS Safety Report 15299051 (Version 7)
Quarter: 2019Q1

REPORT INFORMATION
  Report Type: Report from Study
  Country: IL (occurrence: IL)
  Receive Date: 20180821
  Receipt Date: 20190218
  Transmission Date: 20190417
  Serious: Yes (Hospitalization)
  Sender: FDA-Public Use
  Company Number: IL-ROCHE-2166710

PATIENT
  Age: 63 Year
  Sex: Male
  Weight: 103 kg

DRUGS (3)
  1. PARACETAMOL [Concomitant]
     Active Substance: ACETAMINOPHEN
     Dosage: NOT FOR RENAL CELL CARCINOMA
     Route: 048
     Dates: start: 20180719, end: 20180912
  2. EUTIROX [Concomitant]
     Active Substance: LEVOTHYROXINE SODIUM
     Dosage: NOT FOR RENAL CELL CARCINOMA
     Route: 048
     Dates: start: 20171124
  3. ATEZOLIZUMAB. [Suspect]
     Active Substance: ATEZOLIZUMAB
     Indication: RENAL CELL CARCINOMA
     Dosage: MOST RECENT DOSE OF BLINDED ATEZOLIZUMAB: 12/JUN/2018 AT 16:00
     Route: 042
     Dates: start: 20170710

REACTIONS (1)
  - Anaemia [Recovered/Resolved]

NARRATIVE: CASE EVENT DATE: 20180717
